FAERS Safety Report 9390320 (Version 1)
Quarter: 2013Q3

REPORT INFORMATION
  Report Type: Spontaneous
  Country: SE (occurrence: SE)
  Receive Date: 20130709
  Receipt Date: 20130709
  Transmission Date: 20140515
  Serious: Yes (Other)
  Sender: FDA-Public Use
  Company Number: SE-009507513-1307SWE002734

PATIENT
  Age: 23 Year
  Sex: Male

DRUGS (2)
  1. MIRTAZAPINE [Suspect]
     Dosage: 15 MG/D
     Route: 048
     Dates: start: 20130218, end: 20130311
  2. CIPRALEX [Concomitant]

REACTIONS (1)
  - Myopia [Not Recovered/Not Resolved]
